FAERS Safety Report 4643132-5 (Version None)
Quarter: 2005Q2

REPORT INFORMATION
  Report Type: 
  Country: None (occurrence: None)
  Receive Date: 20050421
  Receipt Date: 20050408
  Transmission Date: 20051028
  Serious: Yes (Hospitalization)
  Sender: FDA-Public Use
  Company Number: 2005057287

PATIENT
  Age: 60 Year
  Sex: Female
  Weight: 88 kg

DRUGS (7)
  1. VFEND [Suspect]
     Indication: BRONCHOPULMONARY ASPERGILLOSIS
     Dosage: 400 MG (200 MG, BID, INTERVAL: EVERY DAY), ORAL
     Route: 048
     Dates: start: 20020201
  2. ATOVAQUONE [Concomitant]
  3. TIZANIDINE HYDROCHLORIDE (TIZANIDINE HYDROCHORIDE) [Concomitant]
  4. PANTOPRAZOLE (PANTOPRAZOLE) [Concomitant]
  5. ESCITALOPRAM OXALATE [Concomitant]
  6. ALPRAZOLAM [Concomitant]
  7. HEPARIN-FRACTION, SODIUM SALT (HEPARIN-FRACTION, SODIUM SALT) [Concomitant]

REACTIONS (11)
  - CYTOMEGALOVIRUS INFECTION [None]
  - DEMYELINATION [None]
  - ENCEPHALITIS [None]
  - GASTROENTERITIS NORWALK VIRUS [None]
  - HYPERHOMOCYSTEINAEMIA [None]
  - MYELITIS [None]
  - PARAPARESIS [None]
  - PARONYCHIA [None]
  - PROTEUS INFECTION [None]
  - RESPIRATORY TRACT INFECTION [None]
  - URINARY TRACT INFECTION [None]
